FAERS Safety Report 4875587-5 (Version None)
Quarter: 2006Q1

REPORT INFORMATION
  Report Type: 
  Country: None (occurrence: None)
  Receive Date: 20060109
  Receipt Date: 20051226
  Transmission Date: 20060701
  Serious: Yes (Life-Threatening, Hospitalization)
  Sender: FDA-Public Use
  Company Number: JP-ROCHE-429979

PATIENT
  Age: 31 Year
  Sex: Female

DRUGS (38)
  1. MYCOPHENOLATE MOFETIL [Suspect]
     Route: 048
     Dates: start: 20041130, end: 20041130
  2. MYCOPHENOLATE MOFETIL [Suspect]
     Route: 048
     Dates: start: 20041202, end: 20041202
  3. MYCOPHENOLATE MOFETIL [Suspect]
     Route: 048
     Dates: start: 20041203, end: 20041206
  4. MYCOPHENOLATE MOFETIL [Suspect]
     Route: 048
     Dates: start: 20041207, end: 20041212
  5. MYCOPHENOLATE MOFETIL [Suspect]
     Route: 048
     Dates: start: 20041213, end: 20050116
  6. MYCOPHENOLATE MOFETIL [Suspect]
     Route: 048
     Dates: start: 20050117, end: 20050130
  7. MYCOPHENOLATE MOFETIL [Suspect]
     Route: 048
     Dates: start: 20050131, end: 20050314
  8. MYCOPHENOLATE MOFETIL [Suspect]
     Route: 048
     Dates: start: 20050315, end: 20050607
  9. MYCOPHENOLATE MOFETIL [Suspect]
     Route: 048
     Dates: start: 20050608, end: 20050712
  10. MYCOPHENOLATE MOFETIL [Suspect]
     Route: 048
     Dates: start: 20050713, end: 20050922
  11. MYCOPHENOLATE MOFETIL [Suspect]
     Route: 048
     Dates: start: 20051031, end: 20051101
  12. MYCOPHENOLATE MOFETIL [Suspect]
     Route: 048
     Dates: start: 20051102, end: 20051102
  13. MYCOPHENOLATE MOFETIL [Suspect]
     Route: 048
     Dates: start: 20051103
  14. PREDNISOLONE [Suspect]
     Route: 048
     Dates: start: 20041211, end: 20041211
  15. PREDNISOLONE [Suspect]
     Route: 048
     Dates: start: 20051015
  16. CYCLOFOSFAMIDE [Suspect]
     Route: 042
     Dates: start: 20051015
  17. ADRIACIN [Suspect]
     Route: 042
     Dates: start: 20051015
  18. VINCRISTINE SULFATE [Suspect]
     Route: 042
     Dates: start: 20051015
  19. RITUXIMAB [Suspect]
     Route: 042
     Dates: start: 20051015
  20. METHYLPREDNISOLONE SODIUM SUCCINATE [Concomitant]
     Route: 042
     Dates: start: 20041201, end: 20041210
  21. BASILIXIMAB [Concomitant]
     Route: 042
     Dates: start: 20041201, end: 20041205
  22. SULBACTAM SODIUM [Concomitant]
     Route: 042
     Dates: start: 20041201, end: 20041210
  23. SULFAMETHOXAZOLE + TRIMETHOPRIM [Concomitant]
     Route: 048
     Dates: start: 20041222
  24. FOSFLUCONAZOLE [Concomitant]
     Route: 042
     Dates: start: 20041201, end: 20041201
  25. MICAFUNGIN [Concomitant]
     Route: 042
     Dates: start: 20041201, end: 20041228
  26. FAMOTIDINE [Concomitant]
     Route: 042
     Dates: start: 20041201, end: 20041215
  27. NICARDIPINE HYDROCHLORIDE [Concomitant]
     Route: 042
     Dates: start: 20041202, end: 20041206
  28. TACROLIMUS HYDRATE [Concomitant]
     Route: 042
     Dates: start: 20041202, end: 20041210
  29. DILTIAZEM HYDROCHLORIDE [Concomitant]
     Route: 042
     Dates: start: 20041206, end: 20041210
  30. ACYCLOVIR [Concomitant]
     Route: 042
     Dates: start: 20041210, end: 20041220
  31. TACROLIMUS HYDRATE [Concomitant]
     Route: 048
     Dates: start: 20041211, end: 20051027
  32. DILTIAZEM HYDROCHLORIDE [Concomitant]
     Route: 048
     Dates: start: 20041216, end: 20050203
  33. FAMOTIDINE [Concomitant]
     Route: 048
     Dates: start: 20041216
  34. ACYCLOVIR [Concomitant]
     Route: 048
     Dates: start: 20041221
  35. SULFAMETHOXAZOLE + TRIMETHOPRIM [Concomitant]
     Route: 042
     Dates: start: 20041201, end: 20041221
  36. ITRACONAZOLE [Concomitant]
     Route: 048
     Dates: start: 20041229, end: 20050124
  37. ATORVASTATIN CALCIUM [Concomitant]
     Route: 048
     Dates: start: 20050129
  38. CYCLOSPORINE [Concomitant]
     Route: 048
     Dates: start: 20051111

REACTIONS (5)
  - CYTOMEGALOVIRUS VIRAEMIA [None]
  - HYPERCHOLESTEROLAEMIA [None]
  - HYPERTRIGLYCERIDAEMIA [None]
  - PNEUMATOSIS INTESTINALIS [None]
  - TREMOR [None]
